FAERS Safety Report 9305754 (Version 1)
Quarter: 2013Q2

REPORT INFORMATION
  Report Type: Spontaneous
  Country: JP (occurrence: JP)
  Receive Date: 20130523
  Receipt Date: 20130523
  Transmission Date: 20140414
  Serious: Yes (Other)
  Sender: FDA-Public Use
  Company Number: JP-PFIZER INC-2013143258

PATIENT
  Age: 73 Year
  Sex: Male

DRUGS (1)
  1. HALCION [Suspect]
     Indication: INSOMNIA
     Dosage: 0.25 MG, SINGLE
     Route: 048
     Dates: start: 20130501

REACTIONS (1)
  - Loss of consciousness [Recovered/Resolved]
